FAERS Safety Report 18904866 (Version 1)
Quarter: 2021Q1

REPORT INFORMATION
  Report Type: Report from Study
  Country: EG (occurrence: EG)
  Receive Date: 20210217
  Receipt Date: 20210217
  Transmission Date: 20210420
  Serious: Yes (Other)
  Sender: FDA-Public Use
  Company Number: NVSC2021EG034065

PATIENT
  Age: 28 Year
  Sex: Female

DRUGS (6)
  1. PIPERIDINE [Concomitant]
     Active Substance: PIPERIDINE
     Indication: PRODUCT USED FOR UNKNOWN INDICATION
     Dosage: 0.5 DF, BID (2 ML (HALF TAB TWICE DAILY AFTER BREAKFAST AND DINNER)
     Route: 065
  2. GABAPENTIN. [Concomitant]
     Active Substance: GABAPENTIN
     Indication: PRODUCT USED FOR UNKNOWN INDICATION
     Dosage: 1 DF, BID (CONVENTIN 100 ONE TAB TWICE DAILY AFTER BREAKFAST AND DINNER)
     Route: 065
  3. MOODAPEX [Concomitant]
     Indication: PRODUCT USED FOR UNKNOWN INDICATION
     Dosage: QD (50 ONCE DAILY AFTER BREAKFAST)
     Route: 065
  4. CALCIUM?D3 [Concomitant]
     Indication: PRODUCT USED FOR UNKNOWN INDICATION
     Dosage: 1 DF, QD (ONE TAB ONCE DAILY AFTER DINNERONE TAB ONCE DAILY AFTER DINNER)
     Route: 065
  5. GILENYA [Suspect]
     Active Substance: FINGOLIMOD HYDROCHLORIDE
     Indication: MULTIPLE SCLEROSIS
     Dosage: 1 DF, QD
     Route: 048
     Dates: start: 20210202
  6. OLAPEX [Concomitant]
     Indication: PRODUCT USED FOR UNKNOWN INDICATION
     Dosage: 1 DF, QD (5 ONE TAB AFTER DINNER)
     Route: 065

REACTIONS (1)
  - Hypoaesthesia [Not Recovered/Not Resolved]

NARRATIVE: CASE EVENT DATE: 20210205
